FAERS Safety Report 11656435 (Version 2)
Quarter: 2015Q4

REPORT INFORMATION
  Report Type: Spontaneous
  Country: FR (occurrence: FR)
  Receive Date: 20151023
  Receipt Date: 20151203
  Transmission Date: 20160304
  Serious: Yes (Hospitalization)
  Sender: FDA-Public Use
  Company Number: FR-TEVA-602179ISR

PATIENT
  Age: 68 Year
  Sex: Female

DRUGS (7)
  1. METHOTREXATE (METHOTREXATE SODIUM) [Suspect]
     Active Substance: METHOTREXATE SODIUM
     Indication: CENTRAL NERVOUS SYSTEM LYMPHOMA
     Dosage: FIRST COURSE, HALF DOSE
     Route: 042
     Dates: start: 20150708
  2. PHYSIOLOGICAL SALT SOLUTION [Concomitant]
     Dosage: 2 LITERS DAILY; HYDRATATION PROTOCOL
     Route: 065
  3. METHOTREXATE (METHOTREXATE SODIUM) [Suspect]
     Active Substance: METHOTREXATE SODIUM
     Dosage: FIFTH COURSE ADMINISTERED BETWEEN 7:50 PM AND 11 PM (5400 MG FOR BODY SURFACE OF 1.80 M2)
     Route: 042
     Dates: start: 20150922, end: 20150922
  4. INEXIUM [Suspect]
     Active Substance: ESOMEPRAZOLE
     Route: 048
     Dates: start: 20150922
  5. ARACYTINE [Concomitant]
     Active Substance: CYTARABINE
     Indication: CENTRAL NERVOUS SYSTEM LYMPHOMA
     Route: 065
  6. METHOTREXATE (METHOTREXATE SODIUM) [Suspect]
     Active Substance: METHOTREXATE SODIUM
     Dosage: 2ND, THIRD AND FOURTH COURSES (COMPLETE DOSE)
     Route: 042
  7. BICARBONATE 1.4 % [Concomitant]
     Dosage: 2 LITERS DAILY; HYDRATATION PROTOCOL
     Route: 065

REACTIONS (4)
  - Hepatocellular injury [Recovered/Resolved]
  - Acute kidney injury [Recovered/Resolved]
  - Cholestasis [Recovering/Resolving]
  - Overdose [Recovering/Resolving]

NARRATIVE: CASE EVENT DATE: 20150923
